FAERS Safety Report 5215441-2 (Version None)
Quarter: 2007Q1

REPORT INFORMATION
  Report Type: 
  Country: None (occurrence: None)
  Receive Date: 20070119
  Receipt Date: 20070119
  Transmission Date: 20070707
  Serious: Yes (Other)
  Sender: FDA-Public Use
  Company Number: None

PATIENT
  Age: 39 Year
  Sex: Female
  Weight: 61.2356 kg

DRUGS (1)
  1. LUPRON DEPOT-3 [Suspect]
     Indication: ENDOMETRIOSIS
     Dosage: EVERY 4 WEEKS IM
     Route: 030
     Dates: start: 20061230, end: 20061231

REACTIONS (5)
  - HYPERSENSITIVITY [None]
  - LIP SWELLING [None]
  - MYALGIA [None]
  - SWOLLEN TONGUE [None]
  - THROAT TIGHTNESS [None]
